FAERS Safety Report 18304942 (Version 2)
Quarter: 2020Q4

REPORT INFORMATION
  Report Type: Spontaneous
  Country: US (occurrence: US)
  Receive Date: 20200923
  Receipt Date: 20201012
  Transmission Date: 20210113
  Serious: Yes (Other)
  Sender: FDA-Public Use
  Company Number: US-PFIZER INC-2020363731

PATIENT
  Age: 64 Year
  Sex: Female

DRUGS (6)
  1. METHOTREXATE SODIUM. [Concomitant]
     Active Substance: METHOTREXATE SODIUM
     Dosage: UNK
  2. XELJANZ XR [Suspect]
     Active Substance: TOFACITINIB CITRATE
     Dosage: 11 MG, DAILY
     Route: 048
     Dates: end: 202009
  3. HYDROXYCHLOROQUINE SULFATE. [Concomitant]
     Active Substance: HYDROXYCHLOROQUINE SULFATE
     Dosage: UNK
  4. VITAMIN D-400 [Concomitant]
     Dosage: 10 UG
  5. CALCIUM [Concomitant]
     Active Substance: CALCIUM
     Dosage: UNK (CALCIUM 500(1250) TABLET)
  6. XELJANZ XR [Suspect]
     Active Substance: TOFACITINIB CITRATE
     Indication: RHEUMATOID ARTHRITIS
     Dosage: 11 MG, DAILY
     Route: 048
     Dates: start: 20191216

REACTIONS (11)
  - Weight decreased [Recovering/Resolving]
  - Nausea [Not Recovered/Not Resolved]
  - Lethargy [Unknown]
  - Insomnia [Unknown]
  - Abdominal pain upper [Unknown]
  - Dry mouth [Unknown]
  - Stress [Unknown]
  - Retinal tear [Not Recovered/Not Resolved]
  - Visual impairment [Not Recovered/Not Resolved]
  - Vitreous floaters [Not Recovered/Not Resolved]
  - Decreased appetite [Unknown]

NARRATIVE: CASE EVENT DATE: 202007
